FAERS Safety Report 9179294 (Version 1)
Quarter: 2012Q4

REPORT INFORMATION
  Report Type: 
  Country: IE (occurrence: IE)
  Receive Date: 20121029
  Receipt Date: 20121029
  Transmission Date: 20130627
  Serious: Yes (Other)
  Sender: FDA-Public Use
  Company Number: IE-ROCHE-1146858

PATIENT
  Age: 64 None
  Sex: Female

DRUGS (4)
  1. XELODA [Suspect]
     Indication: BREAST CANCER
     Route: 048
     Dates: start: 20120516
  2. TYVERB [Suspect]
     Indication: BREAST CANCER
     Route: 048
     Dates: start: 20120516
  3. AQUEOUS CREAM [Concomitant]
  4. PHENOXYETHANOL [Concomitant]
     Route: 061

REACTIONS (3)
  - Onychoclasis [Recovered/Resolved]
  - Skin fissures [Recovered/Resolved]
  - Epistaxis [Recovered/Resolved]
